FAERS Safety Report 7516984-9 (Version None)
Quarter: 2011Q2

REPORT INFORMATION
  Report Type: 
  Country: None (occurrence: None)
  Receive Date: 20110526
  Receipt Date: 20110526
  Transmission Date: 20111010
  Serious: Yes (Hospitalization)
  Sender: FDA-Public Use
  Company Number: None

PATIENT
  Sex: Female
  Weight: 83.6 kg

DRUGS (3)
  1. TAXOTERE [Suspect]
     Dosage: 144 MG
     Dates: end: 20110310
  2. CARBOPLATIN [Suspect]
     Dosage: 900 MG
     Dates: end: 20110310
  3. HERCEPTIN [Suspect]
     Dosage: 534 MG
     Dates: end: 20110407

REACTIONS (4)
  - ELECTROLYTE IMBALANCE [None]
  - VOMITING [None]
  - ABDOMINAL PAIN [None]
  - NAUSEA [None]
